FAERS Safety Report 8424409-4 (Version None)
Quarter: 2012Q2

REPORT INFORMATION
  Report Type: 
  Country: None (occurrence: None)
  Receive Date: 20120608
  Receipt Date: 20111101
  Transmission Date: 20120825
  Serious: No
  Sender: FDA-Public Use
  Company Number: US-ASTRAZENECA-2011SE51813

PATIENT
  Age: 63 Year
  Sex: Male

DRUGS (2)
  1. PULMICORT [Suspect]
     Route: 055
  2. PULMICORT [Suspect]
     Route: 055

REACTIONS (3)
  - MALAISE [None]
  - SPINAL DISORDER [None]
  - CHRONIC OBSTRUCTIVE PULMONARY DISEASE [None]
